FAERS Safety Report 5844651-6 (Version None)
Quarter: 2008Q3

REPORT INFORMATION
  Report Type: 
  Country: None (occurrence: None)
  Receive Date: 20080814
  Receipt Date: 20080806
  Transmission Date: 20090109
  Serious: Yes (Other)
  Sender: FDA-Public Use
  Company Number: BR-BAYER-200816813LA

PATIENT
  Age: 30 Year
  Sex: Female

DRUGS (2)
  1. BETAFERON [Suspect]
     Indication: RELAPSING-REMITTING MULTIPLE SCLEROSIS
     Route: 058
     Dates: start: 20040101, end: 20080805
  2. BETAFERON [Suspect]
     Route: 058
     Dates: start: 20080806

REACTIONS (9)
  - CEREBRAL DISORDER [None]
  - CONTUSION [None]
  - ERYTHEMA [None]
  - FATIGUE [None]
  - INFLUENZA LIKE ILLNESS [None]
  - INJECTION SITE ERYTHEMA [None]
  - MULTIPLE SCLEROSIS RELAPSE [None]
  - NODULE [None]
  - PAIN [None]
